FAERS Safety Report 5707861-4 (Version None)
Quarter: 2008Q2

REPORT INFORMATION
  Report Type: 
  Country: None (occurrence: None)
  Receive Date: 20080414
  Receipt Date: 20080402
  Transmission Date: 20081010
  Serious: Yes (Other)
  Sender: FDA-Public Use
  Company Number: 100#08#2008-01914

PATIENT
  Age: 62 Year
  Sex: Male

DRUGS (2)
  1. FLUOROURACIL [Suspect]
     Indication: RECTAL CANCER STAGE IV
     Dosage: 750 MG
     Route: 040
  2. LEUCOVORIN CALCIUM [Suspect]
     Indication: RECTAL CANCER STAGE IV
     Dosage: 36 MG
     Route: 040

REACTIONS (2)
  - CHOLESTASIS [None]
  - LIVER INJURY [None]
